FAERS Safety Report 12311482 (Version 1)
Quarter: 2016Q2

REPORT INFORMATION
  Report Type: Spontaneous
  Country: JP (occurrence: JP)
  Receive Date: 20160427
  Receipt Date: 20160427
  Transmission Date: 20160815
  Serious: Yes (Hospitalization)
  Sender: FDA-Public Use
  Company Number: JP-WARNER CHILCOTT, LLC-1051106

PATIENT
  Sex: Female

DRUGS (1)
  1. ACTONEL [Suspect]
     Active Substance: RISEDRONATE SODIUM
     Indication: OSTEOPOROSIS
     Route: 048
     Dates: start: 20160320, end: 2016

REACTIONS (4)
  - Blood creatine phosphokinase increased [Recovered/Resolved]
  - C-reactive protein increased [Recovered/Resolved]
  - Myalgia [None]
  - Back pain [None]
